FAERS Safety Report 11387492 (Version 3)
Quarter: 2015Q3

REPORT INFORMATION
  Report Type: Report from Study
  Country: US (occurrence: US)
  Receive Date: 20150817
  Receipt Date: 20150922
  Transmission Date: 20151125
  Serious: Yes (Hospitalization)
  Sender: FDA-Public Use
  Company Number: US-BIOGENIDEC-2015BI110033

PATIENT
  Age: 47 Year
  Sex: Female

DRUGS (1)
  1. TECFIDERA [Suspect]
     Active Substance: DIMETHYL FUMARATE
     Indication: MULTIPLE SCLEROSIS
     Route: 048
     Dates: start: 20130621

REACTIONS (7)
  - Cerebral disorder [Unknown]
  - Fall [Recovered/Resolved]
  - Multiple drug therapy [Unknown]
  - Postictal state [Unknown]
  - Seizure [Recovered/Resolved]
  - Encephalopathy [Unknown]
  - Somnolence [Unknown]

NARRATIVE: CASE EVENT DATE: 201504
